FAERS Safety Report 7202001-7 (Version None)
Quarter: 2010Q4

REPORT INFORMATION
  Report Type: 
  Country: None (occurrence: None)
  Receive Date: 20101229
  Receipt Date: 20101216
  Transmission Date: 20110411
  Serious: Yes (Hospitalization)
  Sender: FDA-Public Use
  Company Number: CA-WATSON-2010-16465

PATIENT
  Age: 72 Year
  Sex: Female

DRUGS (2)
  1. METOPROLOL TARTRATE [Suspect]
     Indication: INTENTIONAL OVERDOSE
     Dosage: 3 3/4 G, SINGLE
     Route: 048
  2. MICROZIDE [Suspect]
     Indication: INTENTIONAL OVERDOSE
     Dosage: 1 1/2 G, SINGLE
     Route: 048

REACTIONS (4)
  - HYPOKALAEMIA [None]
  - HYPOTENSION [None]
  - OVERDOSE [None]
  - SINUS BRADYCARDIA [None]
